FAERS Safety Report 5258854-5 (Version None)
Quarter: 2007Q1

REPORT INFORMATION
  Report Type: 
  Country: None (occurrence: None)
  Receive Date: 20070308
  Receipt Date: 20070305
  Transmission Date: 20070707
  Serious: Yes (Hospitalization)
  Sender: FDA-Public Use
  Company Number: FR-GLAXOSMITHKLINE-B0460892A

PATIENT
  Age: 83 Year
  Sex: Female

DRUGS (13)
  1. AMOXICILLIN [Suspect]
     Indication: PREMEDICATION
     Dosage: 2G SINGLE DOSE
     Route: 048
     Dates: start: 20061207, end: 20061207
  2. DIAMOX [Suspect]
     Indication: PREMEDICATION
     Dosage: 500MG SINGLE DOSE
     Route: 042
     Dates: start: 20061207, end: 20061207
  3. DOLIPRANE [Suspect]
     Indication: PREMEDICATION
     Dosage: 1G PER DAY
     Route: 048
     Dates: start: 20061206, end: 20061207
  4. DIPRIVAN [Suspect]
     Indication: CATARACT OPERATION
     Dosage: 200MG SINGLE DOSE
     Route: 042
     Dates: start: 20061207, end: 20061207
  5. XYLOCAINE [Suspect]
     Indication: PREMEDICATION
     Dosage: 1APP SINGLE DOSE
     Route: 050
     Dates: start: 20061207, end: 20061207
  6. METHOTREXATE [Concomitant]
     Indication: PEMPHIGOID
     Dosage: 10MG WEEKLY
     Route: 048
     Dates: end: 20061208
  7. ATARAX [Concomitant]
     Indication: PREMEDICATION
     Route: 065
     Dates: start: 20061207, end: 20061207
  8. SPECIAFOLDINE [Concomitant]
     Dosage: 5MG PER DAY
     Route: 048
     Dates: start: 20050708, end: 20061208
  9. FUROSEMIDE [Concomitant]
     Dosage: 1UNIT PER DAY
     Route: 048
     Dates: start: 20040420
  10. DIFFU K [Concomitant]
     Dosage: 2UNIT PER DAY
     Route: 048
     Dates: start: 20050520, end: 20061208
  11. TARDYFERON [Concomitant]
     Dosage: 80MG PER DAY
     Route: 048
     Dates: start: 20040920, end: 20061208
  12. ATENOLOL [Concomitant]
     Dosage: 1UNIT PER DAY
     Route: 048
     Dates: start: 20050520
  13. ZOCOR [Concomitant]
     Dosage: 20MG PER DAY
     Route: 048
     Dates: start: 20040420

REACTIONS (15)
  - ACUTE GENERALISED EXANTHEMATOUS PUSTULOSIS [None]
  - DERMATITIS EXFOLIATIVE [None]
  - DRUG INEFFECTIVE [None]
  - EOSINOPHILIA [None]
  - GENERALISED ERYTHEMA [None]
  - INFLAMMATION [None]
  - LYMPHADENOPATHY [None]
  - NORMOCHROMIC NORMOCYTIC ANAEMIA [None]
  - PEMPHIGOID [None]
  - PRURIGO [None]
  - PRURITUS [None]
  - PYREXIA [None]
  - RASH PUSTULAR [None]
  - RENAL IMPAIRMENT [None]
  - SKIN EXFOLIATION [None]
